FAERS Safety Report 21388616 (Version 2)
Quarter: 2023Q1

REPORT INFORMATION
  Report Type: Spontaneous
  Country: CA (occurrence: None)
  Receive Date: 20220928
  Receipt Date: 20230330
  Transmission Date: 20230418
  Serious: Yes (Disabling)
  Sender: FDA-Public Use
  Company Number: 2022A326734

PATIENT
  Age: 76 Year
  Sex: Female

DRUGS (3)
  1. ROSUVASTATIN [Suspect]
     Active Substance: ROSUVASTATIN
     Indication: Hypercholesterolaemia
     Route: 048
  2. CALCIUM [Concomitant]
     Active Substance: CALCIUM
  3. DEXLANSOPRAZOLE [Concomitant]
     Active Substance: DEXLANSOPRAZOLE

REACTIONS (2)
  - Abdominal pain upper [Recovered/Resolved]
  - Product size issue [Recovered/Resolved]
